FAERS Safety Report 11590838 (Version 1)
Quarter: 2015Q4

REPORT INFORMATION
  Report Type: Spontaneous
  Country: US (occurrence: US)
  Receive Date: 20151002
  Receipt Date: 20151002
  Transmission Date: 20160304
  Serious: Yes (Hospitalization, Other)
  Sender: FDA-Public Use
  Company Number: US-ASTRAZENECA-2015SE93941

PATIENT
  Sex: Male

DRUGS (2)
  1. QUETIAPINE FUMARATE. [Suspect]
     Active Substance: QUETIAPINE FUMARATE
     Indication: SLEEP DISORDER
     Route: 048
     Dates: start: 20150922, end: 20150925
  2. QUETIAPINE FUMARATE. [Suspect]
     Active Substance: QUETIAPINE FUMARATE
     Indication: SLEEP DISORDER
     Route: 048
     Dates: start: 20150925, end: 20150925

REACTIONS (8)
  - Loss of consciousness [Recovered/Resolved]
  - Suicidal ideation [Recovered/Resolved]
  - Fatigue [Unknown]
  - Off label use [Unknown]
  - Depression [Recovered/Resolved]
  - Back injury [Unknown]
  - Psychological trauma [Unknown]
  - Product use issue [Unknown]

NARRATIVE: CASE EVENT DATE: 20150922
